FAERS Safety Report 6762169-3 (Version None)
Quarter: 2010Q2

REPORT INFORMATION
  Report Type: 
  Country: None (occurrence: None)
  Receive Date: 20100609
  Receipt Date: 20100407
  Transmission Date: 20101027
  Serious: No
  Sender: FDA-Public Use
  Company Number: US-KINGPHARMUSA00001-K201000409

PATIENT
  Sex: Male
  Weight: 69.388 kg

DRUGS (4)
  1. EMBEDA [Suspect]
     Indication: BACK PAIN
     Dosage: 30 MG, Q12H, UNK
     Dates: start: 20100404
  2. ASPIRIN [Concomitant]
     Indication: BREAKTHROUGH PAIN
     Dosage: UNK
  3. PLAVIX [Concomitant]
     Dosage: UNK
  4. TOPROL-XL [Concomitant]
     Indication: HYPERTENSION
     Dosage: UNK

REACTIONS (1)
  - DRUG INEFFECTIVE [None]
